FAERS Safety Report 17194436 (Version 1)
Quarter: 2019Q4

REPORT INFORMATION
  Report Type: Report from Study
  Country: US (occurrence: US)
  Receive Date: 20191224
  Receipt Date: 20191224
  Transmission Date: 20200122
  Serious: Yes (Hospitalization, Other)
  Sender: FDA-Public Use
  Company Number: US-ROCHE-2049750

PATIENT
  Age: 85 Year
  Sex: Male
  Weight: 77.18 kg

DRUGS (1)
  1. ESBRIET [Suspect]
     Active Substance: PIRFENIDONE
     Indication: IDIOPATHIC PULMONARY FIBROSIS
     Route: 048
     Dates: start: 2015

REACTIONS (5)
  - Myocardial infarction [Unknown]
  - Cerebrovascular accident [Recovered/Resolved]
  - Deafness [Unknown]
  - Dementia [Unknown]
  - Confusional state [Unknown]

NARRATIVE: CASE EVENT DATE: 20171221
